FAERS Safety Report 24079627 (Version 2)
Quarter: 2024Q4

REPORT INFORMATION
  Report Type: Spontaneous
  Country: US (occurrence: US)
  Receive Date: 20240711
  Receipt Date: 20241001
  Transmission Date: 20250115
  Serious: No
  Sender: BIOGEN
  Company Number: US-BIOGEN-2024BI01245262

PATIENT
  Sex: Male

DRUGS (2)
  1. SKYCLARYS [Suspect]
     Active Substance: OMAVELOXOLONE
     Indication: Friedreich^s ataxia
     Dosage: 150 MILLIGRAM, BY MOUTH ONCE DAILY
     Route: 050
     Dates: start: 20230706
  2. SKYCLARYS [Suspect]
     Active Substance: OMAVELOXOLONE
     Route: 050
     Dates: start: 20230706

REACTIONS (7)
  - Balance disorder [Unknown]
  - Foot fracture [Unknown]
  - Fall [Unknown]
  - Asthenia [Unknown]
  - Skin abrasion [Unknown]
  - Skin laceration [Unknown]
  - Wound infection [Unknown]

NARRATIVE: CASE EVENT DATE: 20230101
